FAERS Safety Report 9099964 (Version 4)
Quarter: 2013Q4

REPORT INFORMATION
  Report Type: Spontaneous
  Country: JP (occurrence: JP)
  Receive Date: 20130215
  Receipt Date: 20131217
  Transmission Date: 20140711
  Serious: Yes (Other)
  Sender: FDA-Public Use
  Company Number: JP-AMGEN-JPNSP2013010716

PATIENT
  Age: 79 Year
  Sex: Female

DRUGS (4)
  1. RANMARK [Suspect]
     Indication: PRODUCT USED FOR UNKNOWN INDICATION
     Dosage: 120 MG, UNK
     Route: 065
     Dates: start: 20120817, end: 20130111
  2. AROMASIN [Concomitant]
     Dosage: UNKNOWN
     Route: 065
  3. MIYA BM [Concomitant]
     Dosage: UNKNOWN
     Route: 065
  4. ZOMETA [Concomitant]
     Indication: METASTASES TO BONE
     Route: 042
     Dates: start: 20120427, end: 20120720

REACTIONS (1)
  - Osteonecrosis of jaw [Recovering/Resolving]
